FAERS Safety Report 4498095-2 (Version None)
Quarter: 2004Q3

REPORT INFORMATION
  Report Type: 
  Country: None (occurrence: None)
  Receive Date: 20040927
  Receipt Date: 20040727
  Transmission Date: 20050211
  Serious: No
  Sender: FDA-Public Use
  Company Number: USA040773826

PATIENT
  Age: 39 Year
  Sex: Male
  Weight: 91 kg

DRUGS (4)
  1. STRATTERA [Suspect]
     Indication: ATTENTION DEFICIT/HYPERACTIVITY DISORDER
     Dosage: 40 MG DAY
     Dates: start: 20040722
  2. CIALIS [Concomitant]
  3. ZOCOR [Concomitant]
  4. RITALIN [Concomitant]

REACTIONS (5)
  - FEELING ABNORMAL [None]
  - NAUSEA [None]
  - SOMNOLENCE [None]
  - STOMACH DISCOMFORT [None]
  - TREMOR [None]
